FAERS Safety Report 9142607 (Version 1)
Quarter: 2013Q1

REPORT INFORMATION
  Report Type: Spontaneous
  Country: FI (occurrence: FI)
  Receive Date: 20130306
  Receipt Date: 20130306
  Transmission Date: 20140127
  Serious: Yes (Hospitalization)
  Sender: FDA-Public Use
  Company Number: FI-ELI_LILLY_AND_COMPANY-FI201302008024

PATIENT
  Age: 71 Year
  Sex: Male

DRUGS (7)
  1. CYMBALTA [Suspect]
     Indication: DEPRESSION
     Dosage: 60 MG, QD
     Dates: start: 20130108, end: 20130202
  2. LOSATRIX [Concomitant]
     Indication: BLOOD PRESSURE
     Dosage: 50 MG, UNKNOWN
     Route: 048
  3. HYDREX [Concomitant]
     Dosage: 25 MG, UNKNOWN
     Route: 048
  4. AMLODIPIN                          /00972401/ [Concomitant]
     Indication: BLOOD PRESSURE
     Dosage: 25 MG, UNKNOWN
  5. ROSUVASTATIN [Concomitant]
     Indication: BLOOD CHOLESTEROL
     Dosage: UNK
  6. EZETROL [Concomitant]
     Indication: BLOOD CHOLESTEROL
  7. TRAMAL [Concomitant]
     Indication: PAIN
     Dosage: 100 MG, PRN
     Dates: end: 20130203

REACTIONS (6)
  - Pain in extremity [Recovered/Resolved]
  - Respiratory rate increased [Recovered/Resolved]
  - Restlessness [Recovered/Resolved]
  - Anxiety [Recovered/Resolved]
  - Blood pressure systolic increased [Recovered/Resolved]
  - Breath odour [Recovered/Resolved]
